FAERS Safety Report 18539481 (Version 1)
Quarter: 2020Q4

REPORT INFORMATION
  Report Type: Spontaneous
  Country: GB (occurrence: GB)
  Receive Date: 20201124
  Receipt Date: 20201124
  Transmission Date: 20210114
  Serious: Yes (Other)
  Sender: FDA-Public Use
  Company Number: GB-TEVA-2020-GB-1851449

PATIENT
  Age: 44 Year
  Sex: Male
  Weight: 108 kg

DRUGS (10)
  1. AMOXICILLIN. [Suspect]
     Active Substance: AMOXICILLIN
     Dosage: 500 MG
     Dates: start: 20201026
  2. SALBUTAMOL [Concomitant]
     Active Substance: ALBUTEROL
     Dosage: 2 DOSAGE FORMS
     Route: 055
     Dates: start: 20200529
  3. DOXYCYCLINE. [Concomitant]
     Active Substance: DOXYCYCLINE
     Dosage: TWO NOW THEN ONE DAILY
     Dates: start: 20201026
  4. LEVEMIR [Concomitant]
     Active Substance: INSULIN DETEMIR
     Dosage: USE AS DIRECTED
     Dates: start: 20200529
  5. TERBINAFINE. [Concomitant]
     Active Substance: TERBINAFINE
     Dosage: APPLY, 2 DOSAGE FORMS
     Dates: start: 20201018
  6. HIBISCRUB [Concomitant]
     Active Substance: CHLORHEXIDINE GLUCONATE
     Dosage: USE AS DIRECTED
     Dates: start: 20201026
  7. FUSIDIC ACID [Concomitant]
     Active Substance: FUSIDIC ACID
     Dosage: FOR FIVE DAYS TO AFFECTED AREAS.3 DOSAGE FORMS
     Dates: start: 20201026
  8. ATORVASTATIN [Concomitant]
     Active Substance: ATORVASTATIN
     Dosage: 1 DOSAGE FORMS
     Dates: start: 20200529
  9. NOVORAPID [Concomitant]
     Active Substance: INSULIN ASPART
     Dosage: AS PREVIOUSLY ADVISED
     Dates: start: 20200529
  10. AMOXICILLIN. [Suspect]
     Active Substance: AMOXICILLIN
     Dosage: 1500 MG
     Dates: start: 20200906, end: 20200913

REACTIONS (1)
  - Rash macular [Recovering/Resolving]
